FAERS Safety Report 10584118 (Version 1)
Quarter: 2014Q4

REPORT INFORMATION
  Report Type: Spontaneous
  Country: JP (occurrence: None)
  Receive Date: 20141112
  Receipt Date: 20141112
  Transmission Date: 20150529
  Serious: Yes (Hospitalization)
  Sender: FDA-Public Use
  Company Number: IPC201410-000586

PATIENT
  Age: 61 Year
  Sex: Male

DRUGS (4)
  1. TRICHLORMETHIAZIDE [Suspect]
     Active Substance: TRICHLORMETHIAZIDE
     Indication: CARDIAC FAILURE CONGESTIVE
  2. LOSARTAN (LOSARTAN) [Concomitant]
     Active Substance: LOSARTAN
  3. FUROSEMIDE (FUROSEMIDE) (FUROSEMIDE) [Suspect]
     Active Substance: FUROSEMIDE
     Indication: CARDIAC FAILURE CONGESTIVE
     Route: 042
  4. METHYLDIGOXIN (METHYLDIGOXIN) [Concomitant]

REACTIONS (8)
  - Tricuspid valve incompetence [None]
  - Blood pressure systolic decreased [None]
  - Acute kidney injury [None]
  - Metabolic acidosis [None]
  - Myopathy [None]
  - Shoshin beriberi [None]
  - Vitamin B1 deficiency [None]
  - Wernicke^s encephalopathy [None]
